FAERS Safety Report 8173735-5 (Version None)
Quarter: 2012Q1

REPORT INFORMATION
  Report Type: 
  Country: None (occurrence: None)
  Receive Date: 20120224
  Receipt Date: 20120215
  Transmission Date: 20120608
  Serious: Yes (Other)
  Sender: FDA-Public Use
  Company Number: 2012-000608

PATIENT
  Age: 94 Year
  Sex: Female

DRUGS (1)
  1. RISEDRONATE SODIUM [Suspect]
     Indication: OSTEOPOROSIS
     Dosage: ORAL
     Route: 048

REACTIONS (1)
  - GASTRIC CANCER [None]
